FAERS Safety Report 6295832-1 (Version None)
Quarter: 2009Q3

REPORT INFORMATION
  Report Type: 
  Country: None (occurrence: None)
  Receive Date: 20090803
  Receipt Date: 20090803
  Transmission Date: 20100115
  Serious: Yes (Hospitalization)
  Sender: FDA-Public Use
  Company Number: None

PATIENT
  Age: 59 Year
  Sex: Female
  Weight: 72.5755 kg

DRUGS (2)
  1. FENTANYL TRANSDERMAL SYSTEM [Suspect]
     Indication: ARTHRALGIA
     Dosage: 25MCG/HR 1 PATCH Q 3 DAYS TRANSDERMAL
     Route: 062
     Dates: start: 20071210, end: 20071216
  2. FENTANYL TRANSDERMAL SYSTEM [Suspect]
     Indication: BONE OPERATION
     Dosage: 25MCG/HR 1 PATCH Q 3 DAYS TRANSDERMAL
     Route: 062
     Dates: start: 20071210, end: 20071216

REACTIONS (11)
  - COLD SWEAT [None]
  - DECREASED APPETITE [None]
  - DRUG DELIVERY SYSTEM MALFUNCTION [None]
  - DRUG WITHDRAWAL SYNDROME [None]
  - DYSPNOEA [None]
  - FEELING ABNORMAL [None]
  - INSOMNIA [None]
  - OVERDOSE [None]
  - PRODUCT QUALITY ISSUE [None]
  - TREMOR [None]
  - WEIGHT DECREASED [None]
